FAERS Safety Report 7991666-8 (Version None)
Quarter: 2011Q4

REPORT INFORMATION
  Report Type: 
  Country: None (occurrence: None)
  Receive Date: 20111219
  Receipt Date: 20111209
  Transmission Date: 20120403
  Serious: Yes (Other)
  Sender: FDA-Public Use
  Company Number: US-CELGENEUS-163-21880-11121571

PATIENT
  Sex: Male
  Weight: 90.346 kg

DRUGS (2)
  1. REVLIMID [Suspect]
     Dosage: 10 MILLIGRAM
     Route: 048
     Dates: start: 20070718
  2. ANTIBIOTICS [Concomitant]
     Indication: INFECTION
     Route: 065

REACTIONS (5)
  - SKIN CANCER [None]
  - FATIGUE [None]
  - PANCYTOPENIA [None]
  - POLYP [None]
  - BRONCHITIS [None]
